FAERS Safety Report 9059922 (Version 1)
Quarter: 2013Q1

REPORT INFORMATION
  Report Type: Spontaneous
  Country: US (occurrence: None)
  Receive Date: 20130207
  Receipt Date: 20130207
  Transmission Date: 20140127
  Serious: No
  Sender: FDA-Public Use
  Company Number: None

PATIENT
  Age: 37 Year
  Sex: Male
  Weight: 78.93 kg

DRUGS (1)
  1. LIDOCAINE AND HYDROCORTISONE [Suspect]
     Route: 030
     Dates: start: 20130122, end: 20130122

REACTIONS (12)
  - Product quality issue [None]
  - Haemorrhage [None]
  - Renal pain [None]
  - Exophthalmos [None]
  - Decreased appetite [None]
  - Penile pain [None]
  - Discomfort [None]
  - Hyperhidrosis [None]
  - Nightmare [None]
  - Chest pain [None]
  - Fatigue [None]
  - Anger [None]
